FAERS Safety Report 15296653 (Version 1)
Quarter: 2018Q3

REPORT INFORMATION
  Report Type: Spontaneous
  Country: US (occurrence: US)
  Receive Date: 20180820
  Receipt Date: 20180820
  Transmission Date: 20181010
  Serious: Yes (Hospitalization, Other)
  Sender: FDA-Public Use
  Company Number: US-DSJP-DSU-2017-146434

PATIENT

DRUGS (2)
  1. BENICAR [Suspect]
     Active Substance: OLMESARTAN MEDOXOMIL
     Indication: PRODUCT USED FOR UNKNOWN INDICATION
     Dosage: 40 MG, QD
     Route: 048
     Dates: end: 20150423
  2. AZOR [Suspect]
     Active Substance: AMLODIPINE BESYLATE\OLMESARTAN MEDOXOMIL
     Indication: PRODUCT USED FOR UNKNOWN INDICATION
     Dosage: 5?40 MG, QD
     Route: 048
     Dates: start: 20101015, end: 20150423

REACTIONS (9)
  - Gastrointestinal haemorrhage [Unknown]
  - Sprue-like enteropathy [Recovered/Resolved]
  - Appendicitis [Recovered/Resolved]
  - Constipation [Unknown]
  - Haemorrhoids [Unknown]
  - Anal fissure [Unknown]
  - Diverticulitis [Recovered/Resolved]
  - Large intestine polyp [Unknown]
  - Peptic ulcer [Not Recovered/Not Resolved]

NARRATIVE: CASE EVENT DATE: 20070111
